FAERS Safety Report 16672823 (Version 1)
Quarter: 2019Q3

REPORT INFORMATION
  Report Type: Spontaneous
  Country: US (occurrence: US)
  Receive Date: 20190620
  Receipt Date: 20190620
  Transmission Date: 20191004
  Serious: Yes (Death)
  Sender: FDA-Public Use
  Company Number: None

PATIENT
  Age: 77 Year
  Sex: Female

DRUGS (12)
  1. DOCUSATE [Concomitant]
     Active Substance: DOCUSATE
  2. AMLODIPINE BESYLATE. [Concomitant]
     Active Substance: AMLODIPINE BESYLATE
  3. LACTULOSE. [Concomitant]
     Active Substance: LACTULOSE
  4. HYDROCHLOROTHIAZIDE. [Concomitant]
     Active Substance: HYDROCHLOROTHIAZIDE
  5. PEPCID [Concomitant]
     Active Substance: FAMOTIDINE
  6. LEVOTHYROXINE. [Concomitant]
     Active Substance: LEVOTHYROXINE
  7. METFORMIN [Concomitant]
     Active Substance: METFORMIN HYDROCHLORIDE
  8. NORCO [Concomitant]
     Active Substance: ACETAMINOPHEN\HYDROCODONE BITARTRATE
  9. ATORVASTATIN [Concomitant]
     Active Substance: ATORVASTATIN
  10. FENTANYL. [Concomitant]
     Active Substance: FENTANYL
  11. KISQALI [Suspect]
     Active Substance: RIBOCICLIB
     Indication: NEOPLASM MALIGNANT
     Route: 048
  12. XANAX [Concomitant]
     Active Substance: ALPRAZOLAM

REACTIONS (1)
  - Death [None]
